FAERS Safety Report 9396844 (Version 1)
Quarter: 2013Q3

REPORT INFORMATION
  Report Type: Spontaneous
  Country: US (occurrence: None)
  Receive Date: 20130710
  Receipt Date: 20130710
  Transmission Date: 20140515
  Serious: Yes (Life-Threatening, Hospitalization, Disabling, Other)
  Sender: FDA-Public Use
  Company Number: None

PATIENT
  Age: 23 Year
  Sex: Female
  Weight: 54.43 kg

DRUGS (3)
  1. SERTRALINE [Suspect]
     Indication: ANXIETY
  2. SERTRALINE [Suspect]
     Indication: DEPRESSION
  3. SUMATRIPTAN [Suspect]
     Indication: MIGRAINE

REACTIONS (11)
  - Malaise [None]
  - Vomiting [None]
  - Pain in jaw [None]
  - Dysarthria [None]
  - Tremor [None]
  - Tremor [None]
  - Hallucination [None]
  - Pyrexia [None]
  - Serotonin syndrome [None]
  - Convulsion [None]
  - Meningitis aseptic [None]
